FAERS Safety Report 6749490-X (Version None)
Quarter: 2010Q2

REPORT INFORMATION
  Report Type: 
  Country: None (occurrence: None)
  Receive Date: 20100601
  Receipt Date: 20100520
  Transmission Date: 20101027
  Serious: Yes (Hospitalization, Other)
  Sender: FDA-Public Use
  Company Number: JP-ASTRAZENECA-2010SE23426

PATIENT
  Age: 91 Year
  Sex: Female

DRUGS (3)
  1. XYLOCAINE [Suspect]
     Dosage: 0.6 ML/H DIV
     Route: 058
  2. MORPHINE HYDROCHLORIDE [Concomitant]
     Dosage: 0.6 ML/H DIV
     Route: 058
  3. MAGNESIUM OXIDE [Concomitant]
     Route: 048

REACTIONS (1)
  - HYPERKALAEMIA [None]
